FAERS Safety Report 9784150 (Version 1)
Quarter: 2013Q4

REPORT INFORMATION
  Report Type: Spontaneous
  Country: RU (occurrence: RU)
  Receive Date: 20131226
  Receipt Date: 20131226
  Transmission Date: 20140711
  Serious: Yes (Death)
  Sender: FDA-Public Use
  Company Number: PHHY2013RU152184

PATIENT
  Age: 62 Year
  Sex: Male

DRUGS (2)
  1. VOLTAREN [Suspect]
     Dosage: UNK
     Route: 030
  2. MILGAMMA [Concomitant]
     Dosage: UNK

REACTIONS (1)
  - Haemorrhage [Fatal]
